FAERS Safety Report 23757095 (Version 1)
Quarter: 2024Q2

REPORT INFORMATION
  Report Type: Spontaneous
  Country: US (occurrence: US)
  Receive Date: 20240418
  Receipt Date: 20240418
  Transmission Date: 20240716
  Serious: No
  Sender: FDA-Public Use
  Company Number: US-PFIZER INC-202400087384

PATIENT
  Age: 20 Year
  Sex: Female

DRUGS (1)
  1. OXBRYTA [Suspect]
     Active Substance: VOXELOTOR
     Dosage: 500 MG, 3 TABLETS ONCE DAILY, ORALLY
     Route: 048
     Dates: start: 2021

REACTIONS (1)
  - Haemoglobin decreased [Recovering/Resolving]
